FAERS Safety Report 9170426 (Version 1)
Quarter: 2013Q1

REPORT INFORMATION
  Report Type: Spontaneous
  Country: DE (occurrence: None)
  Receive Date: 20130311
  Receipt Date: 20130311
  Transmission Date: 20140127
  Serious: Yes (Other)
  Sender: FDA-Public Use
  Company Number: NGX_01590_2013

PATIENT
  Age: 29 Year
  Sex: Male

DRUGS (1)
  1. QUTENZA (CAPSAICIN) PATCH (179 MG, 179 MG) [Suspect]
     Indication: COMPLEX REGIONAL PAIN SYNDROME
     Dosage: 2 DF, [PATCHES ON RIGHT LOWER LEG] TOPICAL, 4 DF [PATCHES] TOPICAL
     Route: 061
     Dates: start: 20130124, end: 20130124

REACTIONS (12)
  - Cardiovascular disorder [None]
  - Pyrexia [None]
  - Application site vesicles [None]
  - Application site discolouration [None]
  - Application site erythema [None]
  - Application site erosion [None]
  - Frostbite [None]
  - Application site pain [None]
  - Blood pressure increased [None]
  - Activities of daily living impaired [None]
  - Walking aid user [None]
  - Pain [None]
